FAERS Safety Report 15671626 (Version 1)
Quarter: 2018Q4

REPORT INFORMATION
  Report Type: Report from Study
  Country: US (occurrence: US)
  Receive Date: 20181129
  Receipt Date: 20181129
  Transmission Date: 20190205
  Serious: No
  Sender: FDA-Public Use
  Company Number: US-TESARO-US-2018TSO04166

PATIENT
  Age: 76 Year
  Sex: Female

DRUGS (2)
  1. GABAPENTIN. [Concomitant]
     Active Substance: GABAPENTIN
     Indication: NEUROPATHY PERIPHERAL
     Dosage: UNK
     Route: 048
  2. ZEJULA [Suspect]
     Active Substance: NIRAPARIB
     Indication: MALIGNANT PERITONEAL NEOPLASM
     Dosage: 200 MG, QD AT 1PM
     Route: 048
     Dates: start: 20180809

REACTIONS (7)
  - Blood pressure increased [Not Recovered/Not Resolved]
  - Feeling abnormal [Recovered/Resolved]
  - Eastern Cooperative Oncology Group performance status worsened [Recovering/Resolving]
  - Dyspnoea [Unknown]
  - Sleep disorder [Recovered/Resolved]
  - Platelet count decreased [Not Recovered/Not Resolved]
  - Underdose [Unknown]

NARRATIVE: CASE EVENT DATE: 20180809
